FAERS Safety Report 9016842 (Version 1)
Quarter: 2013Q1

REPORT INFORMATION
  Report Type: Spontaneous
  Country: US (occurrence: US)
  Receive Date: 20130117
  Receipt Date: 20130117
  Transmission Date: 20140127
  Serious: Yes (Other)
  Sender: FDA-Public Use
  Company Number: PHEH2013US001171

PATIENT
  Sex: Female

DRUGS (4)
  1. FEMARA [Suspect]
     Dosage: UNK UKN, UNK
     Dates: start: 2008
  2. ZOMETA [Suspect]
  3. XGEVA [Suspect]
  4. TRAMADOL [Concomitant]

REACTIONS (5)
  - Breast cancer [Unknown]
  - Skin lesion [Unknown]
  - Skin tightness [Unknown]
  - Musculoskeletal chest pain [Unknown]
  - Bone pain [Unknown]
